FAERS Safety Report 9188087 (Version 2)
Quarter: 2013Q2

REPORT INFORMATION
  Report Type: Spontaneous
  Country: JP (occurrence: JP)
  Receive Date: 20130325
  Receipt Date: 20130405
  Transmission Date: 20140414
  Serious: Yes (Other)
  Sender: FDA-Public Use
  Company Number: JP-UCBSA-081374

PATIENT
  Sex: Male

DRUGS (6)
  1. E KEPPRA [Suspect]
     Route: 048
  2. E KEPPRA [Suspect]
     Dosage: REDUCED DOSE
  3. DEPAKENE [Concomitant]
     Dosage: DAILY DOSE: 400 MG
     Route: 048
  4. MYSTAN [Concomitant]
     Dosage: DAILY DOSE: 10 MG
     Route: 048
  5. EXCEGRAN [Concomitant]
     Dosage: DAILY DOSE: 200 MG
     Route: 048
  6. SYMMETREL [Concomitant]
     Dosage: UNKNOWN DOSE
     Route: 048

REACTIONS (3)
  - Pneumonia aspiration [Unknown]
  - C-reactive protein increased [Not Recovered/Not Resolved]
  - Blood iron decreased [Not Recovered/Not Resolved]
